FAERS Safety Report 20168688 (Version 1)
Quarter: 2021Q4

REPORT INFORMATION
  Report Type: Spontaneous
  Country: JP (occurrence: JP)
  Receive Date: 20211210
  Receipt Date: 20211210
  Transmission Date: 20220303
  Serious: Yes (Hospitalization)
  Sender: FDA-Public Use
  Company Number: JP-VIWITPHARMA-2021VWTLIT00024

PATIENT
  Age: 7 Year
  Sex: Male

DRUGS (8)
  1. LEVETIRACETAM [Suspect]
     Active Substance: LEVETIRACETAM
     Indication: Seizure
     Dosage: 1500 MG/DAY
     Route: 065
  2. LACOSAMIDE [Interacting]
     Active Substance: LACOSAMIDE
     Indication: Seizure
     Route: 065
  3. LACOSAMIDE [Interacting]
     Active Substance: LACOSAMIDE
     Dosage: 150 MG/DAY
     Route: 065
  4. LACOSAMIDE [Interacting]
     Active Substance: LACOSAMIDE
     Dosage: 200 MG/DAY
     Route: 065
  5. VALPROIC ACID [Concomitant]
     Active Substance: VALPROIC ACID
     Indication: Product used for unknown indication
     Route: 065
  6. VALPROIC ACID [Concomitant]
     Active Substance: VALPROIC ACID
     Dosage: 600 MG/DAY [20 MG/KG/DAY]
     Route: 065
  7. LAMOTRIGINE [Concomitant]
     Active Substance: LAMOTRIGINE
     Route: 065
  8. LAMOTRIGINE [Concomitant]
     Active Substance: LAMOTRIGINE
     Dosage: 32 MG/DAY [1.1 MG/KG/DAY]
     Route: 065

REACTIONS (1)
  - Seizure [Recovered/Resolved]
